FAERS Safety Report 6978976-8 (Version None)
Quarter: 2010Q3

REPORT INFORMATION
  Report Type: 
  Country: None (occurrence: None)
  Receive Date: 20100913
  Receipt Date: 20100902
  Transmission Date: 20110219
  Serious: Yes (Hospitalization)
  Sender: FDA-Public Use
  Company Number: IT-SANOFI-AVENTIS-2010SA052480

PATIENT
  Age: 51 Year
  Sex: Female

DRUGS (1)
  1. LASIX [Suspect]
     Route: 048
     Dates: start: 20090101, end: 20100710

REACTIONS (2)
  - ELECTROLYTE IMBALANCE [None]
  - GRAND MAL CONVULSION [None]
